FAERS Safety Report 4755439-1 (Version None)
Quarter: 2005Q3

REPORT INFORMATION
  Report Type: 
  Country: None (occurrence: None)
  Receive Date: 20050826
  Receipt Date: 20050826
  Transmission Date: 20060218
  Serious: Yes (Death)
  Sender: FDA-Public Use
  Company Number: None

PATIENT
  Age: 68 Year
  Sex: Male
  Weight: 63.5036 kg

DRUGS (19)
  1. DURAGESIC TRANSDERMAL PATCH [Suspect]
     Indication: PNEUMONIA
     Dosage: 50 MCG/HR X1 PATCH
     Dates: start: 20050312
  2. PLAVIX [Concomitant]
  3. ASPIRIN [Concomitant]
  4. LIPITOR [Concomitant]
  5. CEFUROXIME [Concomitant]
  6. PROZAC [Concomitant]
  7. DICLOXACILLIN [Concomitant]
  8. ADVAIR DISKUS 100/50 [Concomitant]
  9. GUAIFENESIN [Concomitant]
  10. PROTONIX [Concomitant]
  11. FERROUS SULFATE [Concomitant]
  12. MAGNESIUM [Concomitant]
  13. ZINC [Concomitant]
  14. ASCORBIC ACID [Concomitant]
  15. CALCIUM WITH VITAMIN D [Concomitant]
  16. FOSAMAX [Concomitant]
  17. DHEA [Concomitant]
  18. MORPHINE [Concomitant]
  19. OXYCODONE [Concomitant]

REACTIONS (4)
  - COMA [None]
  - GENERAL PHYSICAL HEALTH DETERIORATION [None]
  - RENAL FAILURE [None]
  - THERAPY NON-RESPONDER [None]
